FAERS Safety Report 8508419-4 (Version None)
Quarter: 2012Q3

REPORT INFORMATION
  Report Type: 
  Country: None (occurrence: None)
  Receive Date: 20120713
  Receipt Date: 20120709
  Transmission Date: 20120928
  Serious: Yes (Other)
  Sender: FDA-Public Use
  Company Number: PHEH2012US012580

PATIENT
  Sex: Female

DRUGS (8)
  1. SEROQUEL [Concomitant]
     Dosage: UNK UKN, UNK
  2. ARICEPT [Concomitant]
     Dosage: UNK
  3. BLOOD PRESSURE MEDICINES [Concomitant]
  4. PRAVASTATIN [Concomitant]
     Dosage: UNK UKN, UNK
  5. EXELON [Suspect]
     Indication: DEMENTIA ALZHEIMER'S TYPE
     Dosage: 4.6 MG, DAILY
     Route: 062
     Dates: start: 20120501
  6. EXELON [Suspect]
     Dosage: 2 PATCHES (4.6 MG), DAILY
     Route: 062
     Dates: start: 20120501
  7. NAMENDA [Concomitant]
     Dosage: UNK
  8. CYMBALTA [Concomitant]
     Dosage: UNK UKN, UNK

REACTIONS (8)
  - MEMORY IMPAIRMENT [None]
  - DRUG INEFFECTIVE [None]
  - MOOD ALTERED [None]
  - FEELING ABNORMAL [None]
  - CONFUSIONAL STATE [None]
  - TRAUMATIC HAEMATOMA [None]
  - FALL [None]
  - INCORRECT DOSE ADMINISTERED [None]
